FAERS Safety Report 7337492-4 (Version None)
Quarter: 2011Q1

REPORT INFORMATION
  Report Type: 
  Country: None (occurrence: None)
  Receive Date: 20110308
  Receipt Date: 20110223
  Transmission Date: 20110831
  Serious: Yes (Hospitalization, Other)
  Sender: FDA-Public Use
  Company Number: JP-AMGEN-JPNSP2011012199

PATIENT
  Age: 55 Year
  Sex: Female
  Weight: 44 kg

DRUGS (5)
  1. RIMATIL [Concomitant]
     Dosage: UNK
     Route: 048
  2. ENBREL [Suspect]
     Indication: RHEUMATOID ARTHRITIS
     Dosage: 25 MG, 2X/WEEK
     Route: 058
     Dates: start: 20061017, end: 20081019
  3. ENBREL [Suspect]
     Dosage: 25 MG, 2X/WEEK
     Route: 058
     Dates: start: 20081020, end: 20090908
  4. PREDNISOLONE [Concomitant]
     Dosage: UNK
     Route: 048
  5. AZULFIDINE [Concomitant]
     Dosage: UNK
     Route: 048
     Dates: end: 20061201

REACTIONS (2)
  - INTESTINAL OBSTRUCTION [None]
  - EXTRANODAL MARGINAL ZONE B-CELL LYMPHOMA (MALT TYPE) STAGE II [None]
